FAERS Safety Report 7621088-0 (Version None)
Quarter: 2011Q3

REPORT INFORMATION
  Report Type: 
  Country: None (occurrence: None)
  Receive Date: 20110719
  Receipt Date: 20100525
  Transmission Date: 20111222
  Serious: No
  Sender: FDA-Public Use
  Company Number: US-KINGPHARMUSA00001-K201000662

PATIENT
  Age: 31 Year
  Sex: Female
  Weight: 58.503 kg

DRUGS (3)
  1. LEVOXYL [Suspect]
     Dosage: 100 MCG, 5X/W
     Route: 048
     Dates: start: 20100524, end: 20100605
  2. LEVOXYL [Suspect]
     Dosage: 50 MCG, QD
     Route: 048
     Dates: start: 20100606
  3. LEVOXYL [Suspect]
     Indication: THYROIDECTOMY
     Dosage: 100 MCG, QD
     Route: 048
     Dates: start: 20100507, end: 20100523

REACTIONS (16)
  - BONE PAIN [None]
  - ENERGY INCREASED [None]
  - DYSPNOEA [None]
  - HEART RATE INCREASED [None]
  - ARTHRALGIA [None]
  - DISTURBANCE IN ATTENTION [None]
  - HYPERTHYROIDISM [None]
  - PALPITATIONS [None]
  - BACK PAIN [None]
  - INFLAMMATION [None]
  - FATIGUE [None]
  - CHEST PAIN [None]
  - SLUGGISHNESS [None]
  - INSOMNIA [None]
  - IRRITABILITY [None]
  - WEIGHT DECREASED [None]
